FAERS Safety Report 11026096 (Version 5)
Quarter: 2015Q2

REPORT INFORMATION
  Report Type: Report from Study
  Country: GR (occurrence: GR)
  Receive Date: 20150414
  Receipt Date: 20150623
  Transmission Date: 20150821
  Serious: Yes (Death, Hospitalization)
  Sender: FDA-Public Use
  Company Number: GR-ABBVIE-15P-066-1373094-00

PATIENT
  Age: 72 Year
  Sex: Female

DRUGS (11)
  1. DUODOPA [Suspect]
     Active Substance: CARBIDOPA\LEVODOPA
     Indication: PARKINSON^S DISEASE
     Dosage: MD:7 ML, CR: 5.4 ML/H, ED: 3 ML
     Route: 050
     Dates: start: 2010
  2. DUODOPA [Suspect]
     Active Substance: CARBIDOPA\LEVODOPA
     Dosage: MD:6 ML, CD: 4.7 ML, ED: 3ML
     Route: 050
  3. EXELON [Concomitant]
     Active Substance: RIVASTIGMINE TARTRATE
     Indication: PRODUCT USED FOR UNKNOWN INDICATION
     Dosage: 13.3 MG X DAILY
     Route: 062
  4. NEXIUM [Concomitant]
     Active Substance: ESOMEPRAZOLE MAGNESIUM
     Indication: PRODUCT USED FOR UNKNOWN INDICATION
     Route: 042
  5. NEURONTIN [Concomitant]
     Active Substance: GABAPENTIN
     Indication: PRODUCT USED FOR UNKNOWN INDICATION
     Route: 048
  6. POTASSIUM GLUCONATE [Concomitant]
     Active Substance: POTASSIUM GLUCONATE
     Indication: PRODUCT USED FOR UNKNOWN INDICATION
     Route: 048
  7. CLEXANE [Concomitant]
     Active Substance: ENOXAPARIN SODIUM
     Indication: PRODUCT USED FOR UNKNOWN INDICATION
     Route: 058
  8. TILDIEM [Concomitant]
     Active Substance: DILTIAZEM HYDROCHLORIDE
     Indication: PRODUCT USED FOR UNKNOWN INDICATION
     Route: 048
  9. TILDIEM [Concomitant]
     Active Substance: DILTIAZEM HYDROCHLORIDE
     Indication: PRODUCT USED FOR UNKNOWN INDICATION
     Route: 048
  10. LASIX [Concomitant]
     Active Substance: FUROSEMIDE
     Indication: PRODUCT USED FOR UNKNOWN INDICATION
     Route: 042
  11. REMERON [Concomitant]
     Active Substance: MIRTAZAPINE
     Indication: PRODUCT USED FOR UNKNOWN INDICATION
     Route: 048

REACTIONS (15)
  - Decubitus ulcer [Recovering/Resolving]
  - Respiratory tract infection [Fatal]
  - Hypotension [Not Recovered/Not Resolved]
  - Syncope [Recovered/Resolved]
  - Pyrexia [Not Recovered/Not Resolved]
  - Respiratory tract infection [Not Recovered/Not Resolved]
  - Blood glucose decreased [Recovering/Resolving]
  - Dyspnoea [Not Recovered/Not Resolved]
  - Pyrexia [Recovering/Resolving]
  - Purulent discharge [Recovering/Resolving]
  - Sepsis [Fatal]
  - Stoma site erythema [Recovering/Resolving]
  - Haemodynamic instability [Not Recovered/Not Resolved]
  - Parkinson^s disease [Fatal]
  - Cardio-respiratory arrest [Fatal]

NARRATIVE: CASE EVENT DATE: 20150329
